FAERS Safety Report 4588286-4 (Version None)
Quarter: 2005Q1

REPORT INFORMATION
  Report Type: 
  Country: None (occurrence: None)
  Receive Date: 20050222
  Receipt Date: 20050209
  Transmission Date: 20050727
  Serious: Yes (Hospitalization, Other)
  Sender: FDA-Public Use
  Company Number: US-JNJFOC-20041100444

PATIENT
  Sex: Female
  Weight: 60.78 kg

DRUGS (8)
  1. REMICADE [Suspect]
     Route: 042
  2. REMICADE [Suspect]
     Indication: CROHN'S DISEASE
     Route: 042
  3. 6-MP [Concomitant]
     Indication: CROHN'S DISEASE
  4. PENTASA [Concomitant]
     Route: 049
  5. PREVACID [Concomitant]
  6. MAGNESIUM [Concomitant]
  7. ENBREL [Concomitant]
  8. ATIVAN [Concomitant]

REACTIONS (2)
  - LUPUS-LIKE SYNDROME [None]
  - NEUROPATHY PERIPHERAL [None]
